FAERS Safety Report 7749706-7 (Version None)
Quarter: 2011Q3

REPORT INFORMATION
  Report Type: 
  Country: None (occurrence: None)
  Receive Date: 20110914
  Receipt Date: 20110906
  Transmission Date: 20111222
  Serious: Yes (Death, Hospitalization)
  Sender: FDA-Public Use
  Company Number: JP-ROCHE-771249

PATIENT
  Sex: Male

DRUGS (14)
  1. PYDOXAL [Concomitant]
     Route: 048
  2. FAMOTIDINE [Concomitant]
     Route: 048
  3. AMLODIPINE [Concomitant]
     Route: 048
  4. OXALIPLATIN [Suspect]
     Indication: LARGE INTESTINE CARCINOMA
     Route: 041
     Dates: start: 20100319, end: 20101201
  5. EFUDEX [Concomitant]
     Dosage: INTRAVENOUS BOLUS FOLLOWED BY INTRAVENOUS DRIP.
     Route: 042
     Dates: start: 20100319, end: 20101201
  6. IRINOTECAN HCL [Suspect]
     Route: 041
     Dates: start: 20101221, end: 20110317
  7. LEUCOVORIN CALCIUM [Concomitant]
     Route: 041
     Dates: start: 20101221, end: 20110317
  8. EFUDEX [Concomitant]
     Dosage: 600MG 1/3 WEEK FOLLOWED BY 1500MG 1/3 WEEK
     Route: 042
     Dates: start: 20101221, end: 20110317
  9. AVASTIN [Suspect]
     Route: 041
     Dates: start: 20101221, end: 20110317
  10. DEXAMETHASONE SODIUM PHOSPHATE [Concomitant]
     Route: 041
     Dates: start: 20101222
  11. AVASTIN [Suspect]
     Indication: LARGE INTESTINE CARCINOMA
     Dosage: FREQUENCY: 1/2 WEEKS
     Route: 041
  12. IRINOTECAN HCL [Suspect]
     Indication: LARGE INTESTINE CARCINOMA
     Route: 041
  13. GRANISETRON [Concomitant]
     Route: 041
     Dates: start: 20101221
  14. AVASTIN [Suspect]
     Route: 041
     Dates: start: 20100722, end: 20101201

REACTIONS (8)
  - DIARRHOEA [None]
  - STOMATITIS [None]
  - PYREXIA [None]
  - CHILLS [None]
  - THROMBOTIC THROMBOCYTOPENIC PURPURA [None]
  - DYSPNOEA [None]
  - UNEVALUABLE EVENT [None]
  - PALPITATIONS [None]
